FAERS Safety Report 5252616-0 (Version None)
Quarter: 2007Q1

REPORT INFORMATION
  Report Type: 
  Country: None (occurrence: None)
  Receive Date: 20070227
  Receipt Date: 20070227
  Transmission Date: 20070707
  Serious: Yes (Other)
  Sender: FDA-Public Use
  Company Number: None

PATIENT
  Age: 50 Year
  Sex: Female
  Weight: 88.4514 kg

DRUGS (1)
  1. CIPROFLOXACIN HCL [Suspect]
     Indication: HYPERSENSITIVITY
     Dosage: ONE PILL  ONCE  PO
     Route: 048
     Dates: start: 20070217, end: 20070217

REACTIONS (11)
  - AGITATION [None]
  - ANXIETY [None]
  - ARTHRALGIA [None]
  - HEART RATE INCREASED [None]
  - HEART RATE IRREGULAR [None]
  - INSOMNIA [None]
  - NERVOUSNESS [None]
  - PAIN IN EXTREMITY [None]
  - SKIN BURNING SENSATION [None]
  - TINNITUS [None]
  - TREMOR [None]
